FAERS Safety Report 8537947-0 (Version None)
Quarter: 2012Q3

REPORT INFORMATION
  Report Type: 
  Country: None (occurrence: None)
  Receive Date: 20120725
  Receipt Date: 20120720
  Transmission Date: 20120928
  Serious: Yes (Hospitalization)
  Sender: FDA-Public Use
  Company Number: FI-ROCHE-1090458

PATIENT
  Sex: Male

DRUGS (4)
  1. MABTHERA [Suspect]
     Indication: RHEUMATOID ARTHRITIS
     Route: 042
     Dates: start: 20070101
  2. IBUPROFEN [Concomitant]
     Route: 048
  3. PREDNISOLONE [Concomitant]
     Route: 048
  4. CALCICHEW D3 FORTE [Concomitant]
     Route: 048

REACTIONS (1)
  - AGRANULOCYTOSIS [None]
